FAERS Safety Report 10607252 (Version 2)
Quarter: 2014Q4

REPORT INFORMATION
  Report Type: Spontaneous
  Country: FR (occurrence: FR)
  Receive Date: 20141125
  Receipt Date: 20141212
  Transmission Date: 20150529
  Serious: Yes (Hospitalization)
  Sender: FDA-Public Use
  Company Number: FR-SA-2014SA158656

PATIENT
  Age: 87 Year
  Sex: Female

DRUGS (9)
  1. LASILIX [Suspect]
     Active Substance: FUROSEMIDE
     Route: 065
  2. ALDACTONE [Suspect]
     Active Substance: SPIRONOLACTONE
     Dosage: 1 DF IN MORNING
     Route: 065
     Dates: start: 201303, end: 20140716
  3. PREVISCAN [Concomitant]
     Active Substance: FLUINDIONE
     Dosage: IN EVENING
  4. LASILIX [Suspect]
     Active Substance: FUROSEMIDE
     Route: 065
     Dates: start: 20140719
  5. LEVOTHYROX [Concomitant]
     Active Substance: LEVOTHYROXINE
     Dosage: IN MORNING
  6. PERINDOPRIL [Suspect]
     Active Substance: PERINDOPRIL
     Dosage: 1 DF IN MORNING
     Route: 065
     Dates: start: 20140617, end: 20140716
  7. DIFFU K [Concomitant]
     Active Substance: POTASSIUM CHLORIDE
     Dosage: 2 IN MORNING
  8. ESIDREX [Suspect]
     Active Substance: HYDROCHLOROTHIAZIDE
     Dosage: .5 DF IN MORNING
     Route: 065
     Dates: end: 20140716
  9. BISOPROLOL [Concomitant]
     Active Substance: BISOPROLOL
     Dosage: MORNING

REACTIONS (3)
  - Hypokalaemia [Recovered/Resolved]
  - Hyperthyroidism [Recovered/Resolved]
  - Acute kidney injury [Recovered/Resolved]

NARRATIVE: CASE EVENT DATE: 20140716
